FAERS Safety Report 9687969 (Version 1)
Quarter: 2013Q4

REPORT INFORMATION
  Report Type: Spontaneous
  Country: US (occurrence: US)
  Receive Date: 20131114
  Receipt Date: 20131114
  Transmission Date: 20140711
  Serious: Yes (Death, Hospitalization)
  Sender: FDA-Public Use
  Company Number: US-MYLANLABS-2013S1024797

PATIENT
  Age: 29 Year
  Sex: Female

DRUGS (5)
  1. BUPROPION [Suspect]
     Indication: OVERDOSE
     Route: 065
  2. DESVENLAFAXINE [Suspect]
     Indication: OVERDOSE
     Route: 065
  3. ESCITALOPRAM [Suspect]
     Indication: OVERDOSE
     Route: 065
  4. IBUPROFEN [Suspect]
     Indication: OVERDOSE
     Route: 065
  5. QUETIAPINE [Suspect]
     Indication: OVERDOSE
     Route: 065

REACTIONS (4)
  - Cardiac arrest [Recovered/Resolved]
  - Haemodynamic instability [Recovered/Resolved]
  - Brain injury [Fatal]
  - Overdose [Fatal]
